FAERS Safety Report 23875854 (Version 2)
Quarter: 2024Q4

REPORT INFORMATION
  Report Type: Report from Study
  Country: CN (occurrence: CN)
  Receive Date: 20240520
  Receipt Date: 20241022
  Transmission Date: 20250114
  Serious: Yes (Death, Other)
  Sender: ELI LILLY AND COMPANY
  Company Number: CN-ELI_LILLY_AND_COMPANY-CN202405005064

PATIENT
  Age: 52 Year
  Sex: Male

DRUGS (2)
  1. CYRAMZA [Suspect]
     Active Substance: RAMUCIRUMAB
     Indication: Gastric cancer
     Dosage: UNK, UNKNOWN
     Route: 041
     Dates: start: 20240414
  2. CADONILIMAB [Concomitant]
     Active Substance: CADONILIMAB
     Indication: Gastric cancer
     Dosage: UNK
     Route: 041
     Dates: start: 20240414

REACTIONS (5)
  - Death [Fatal]
  - Hepatic encephalopathy [Unknown]
  - Adrenal insufficiency [Unknown]
  - Hypoalbuminaemia [Unknown]
  - Hypothyroidism [Unknown]
